FAERS Safety Report 7373375-1 (Version None)
Quarter: 2011Q1

REPORT INFORMATION
  Report Type: 
  Country: None (occurrence: None)
  Receive Date: 20110324
  Receipt Date: 20110323
  Transmission Date: 20110831
  Serious: Yes (Other)
  Sender: FDA-Public Use
  Company Number: SG-BAYER-2011-025529

PATIENT
  Age: 67 Year
  Sex: Female

DRUGS (1)
  1. GLUCOBAY [Suspect]

REACTIONS (1)
  - DRUG INTOLERANCE [None]
